FAERS Safety Report 6930565-7 (Version None)
Quarter: 2010Q3

REPORT INFORMATION
  Report Type: 
  Country: None (occurrence: None)
  Receive Date: 20100818
  Receipt Date: 20100804
  Transmission Date: 20110219
  Serious: Yes (Death)
  Sender: FDA-Public Use
  Company Number: B0669625A

PATIENT

DRUGS (1)
  1. MELPHALAN [Suspect]
     Indication: MULTIPLE MYELOMA
     Dosage: 200MGM2 PER DAY
     Route: 065

REACTIONS (1)
  - VENOOCCLUSIVE DISEASE [None]
